FAERS Safety Report 10725844 (Version 1)
Quarter: 2015Q1

REPORT INFORMATION
  Report Type: Spontaneous
  Country: US (occurrence: None)
  Receive Date: 20150116
  Receipt Date: 20150116
  Transmission Date: 20150721
  Serious: Yes (Hospitalization)
  Sender: FDA-Public Use
  Company Number: None

PATIENT
  Age: 50 Year
  Sex: Female

DRUGS (6)
  1. LISINOPRIL. [Concomitant]
     Active Substance: LISINOPRIL
  2. BACLOFEN. [Concomitant]
     Active Substance: BACLOFEN
  3. REBIF [Concomitant]
     Active Substance: INTERFERON BETA-1A
  4. HYDRALAZINE [Concomitant]
     Active Substance: HYDRALAZINE HYDROCHLORIDE
  5. AMPYRA [Suspect]
     Active Substance: DALFAMPRIDINE
     Indication: MULTIPLE SCLEROSIS
     Route: 048
     Dates: start: 20100520
  6. OXYBUTYNIN [Concomitant]
     Active Substance: OXYBUTYNIN

REACTIONS (18)
  - Confusional state [None]
  - Escherichia urinary tract infection [None]
  - Rash maculo-papular [None]
  - Psychotic disorder [None]
  - Autonomic nervous system imbalance [None]
  - Multiple sclerosis relapse [None]
  - Enterococcal infection [None]
  - Feeling abnormal [None]
  - Hypertensive crisis [None]
  - Citrobacter infection [None]
  - Hypothyroidism [None]
  - Urinary tract infection [None]
  - Hallucination [None]
  - Aspartate aminotransferase increased [None]
  - Pain [None]
  - Alanine aminotransferase increased [None]
  - Dysarthria [None]
  - Hypothermia [None]

NARRATIVE: CASE EVENT DATE: 20141214
